FAERS Safety Report 8421291-6 (Version None)
Quarter: 2012Q2

REPORT INFORMATION
  Report Type: 
  Country: None (occurrence: None)
  Receive Date: 20120608
  Receipt Date: 20120530
  Transmission Date: 20120825
  Serious: Yes (Other)
  Sender: FDA-Public Use
  Company Number: GB-JNJFOC-20120506417

PATIENT
  Sex: Male

DRUGS (3)
  1. GOLIMUMAB [Suspect]
     Route: 058
     Dates: start: 20120523
  2. GOLIMUMAB [Suspect]
     Route: 058
  3. GOLIMUMAB [Suspect]
     Indication: PRODUCT USED FOR UNKNOWN INDICATION
     Route: 058
     Dates: start: 20120423

REACTIONS (6)
  - DIARRHOEA [None]
  - FEELING COLD [None]
  - DECREASED APPETITE [None]
  - NAUSEA [None]
  - PAIN [None]
  - FATIGUE [None]
